FAERS Safety Report 6244264-0 (Version None)
Quarter: 2009Q2

REPORT INFORMATION
  Report Type: 
  Country: None (occurrence: None)
  Receive Date: 20090625
  Receipt Date: 20090429
  Transmission Date: 20091009
  Serious: No
  Sender: FDA-Public Use
  Company Number: US-KINGPHARMUSA00001-K200900510

PATIENT
  Age: 11 Year
  Sex: Male

DRUGS (1)
  1. BICILLIN L-A [Suspect]
     Dosage: 1200000 IU, SINGLE
     Route: 030
     Dates: start: 20090420, end: 20090420

REACTIONS (3)
  - INJECTION SITE CELLULITIS [None]
  - INJECTION SITE ERYTHEMA [None]
  - MYALGIA [None]
